FAERS Safety Report 21171306 (Version 1)
Quarter: 2022Q3

REPORT INFORMATION
  Report Type: Spontaneous
  Country: US (occurrence: None)
  Receive Date: 20220803
  Receipt Date: 20220803
  Transmission Date: 20221026
  Serious: No
  Sender: FDA-Public Use
  Company Number: None

PATIENT
  Age: 62 Year
  Sex: Female
  Weight: 47.25 kg

DRUGS (1)
  1. PAXLOVID [Suspect]
     Active Substance: NIRMATRELVIR\RITONAVIR
     Indication: COVID-19
     Dates: start: 20220730, end: 20220802

REACTIONS (4)
  - Dysgeusia [None]
  - Anxiety [None]
  - Sleep disorder [None]
  - Ageusia [None]

NARRATIVE: CASE EVENT DATE: 20220730
